FAERS Safety Report 23461747 (Version 1)
Quarter: 2024Q1

REPORT INFORMATION
  Report Type: Report from Study
  Country: US (occurrence: US)
  Receive Date: 20240131
  Receipt Date: 20240131
  Transmission Date: 20240410
  Serious: Yes (Death, Other)
  Sender: FDA-Public Use
  Company Number: US-PFIZER INC-PV202400011173

PATIENT

DRUGS (2)
  1. CARBOPLATIN [Suspect]
     Active Substance: CARBOPLATIN
     Indication: Non-small cell lung cancer
     Dosage: 2 MG/M2, CYCLIC (ONCE WEEKLY AT A MAXIMAL DOSE OF THE AREA UNDER THE CURVE)
  2. PACLITAXEL [Suspect]
     Active Substance: PACLITAXEL
     Indication: Non-small cell lung cancer
     Dosage: 45 MG/M2, CYCLIC (ONCE WEEKLY AT A MAXIMAL DOSE OF THE AREA UNDER THE CURVE)

REACTIONS (1)
  - Pulmonary toxicity [Fatal]
